FAERS Safety Report 9942333 (Version 1)
Quarter: 2014Q1

REPORT INFORMATION
  Report Type: Report from Study
  Country: RU (occurrence: RU)
  Receive Date: 20140303
  Receipt Date: 20140303
  Transmission Date: 20141002
  Serious: Yes (Hospitalization)
  Sender: FDA-Public Use
  Company Number: RU-SA-2014SA021431

PATIENT
  Age: 59 Year
  Sex: Male

DRUGS (5)
  1. PLAVIX [Suspect]
     Indication: THROMBOSIS PROPHYLAXIS
     Route: 048
     Dates: start: 20131217
  2. RAMIPRIL [Concomitant]
     Indication: HYPERTENSION
     Route: 048
  3. THROMBO ASS [Concomitant]
     Indication: THROMBOSIS PROPHYLAXIS
     Route: 048
  4. BETALOC [Concomitant]
     Indication: MYOCARDIAL ISCHAEMIA
     Dosage: STRENGTH: 100 MG
     Route: 048
  5. LIPRIMAR [Concomitant]
     Indication: LIPIDS INCREASED
     Dosage: STRENGTH: 40 MG
     Route: 048

REACTIONS (3)
  - Chest pain [Recovered/Resolved]
  - Dyspnoea [Recovered/Resolved]
  - Arterial restenosis [Recovered/Resolved]
